FAERS Safety Report 9887502 (Version 1)
Quarter: 2014Q1

REPORT INFORMATION
  Report Type: Spontaneous
  Country: CA (occurrence: CA)
  Receive Date: 20140211
  Receipt Date: 20140211
  Transmission Date: 20141002
  Serious: Yes (Other)
  Sender: FDA-Public Use
  Company Number: CA-ROCHE-1345935

PATIENT
  Sex: Male

DRUGS (2)
  1. NUTROPIN AQ [Suspect]
     Indication: GROWTH HORMONE DEFICIENCY
     Dosage: ADDITIONAL ROUTE: INTRAMUSCULAR
     Route: 058
     Dates: start: 200912
  2. CORTISONE [Concomitant]

REACTIONS (2)
  - Depression [Unknown]
  - Obesity [Unknown]
